FAERS Safety Report 15477831 (Version 4)
Quarter: 2018Q4

REPORT INFORMATION
  Report Type: Report from Study
  Country: US (occurrence: US)
  Receive Date: 20181009
  Receipt Date: 20181219
  Transmission Date: 20190205
  Serious: No
  Sender: FDA-Public Use
  Company Number: US-AMGEN INC.-USASP2018129047

PATIENT
  Age: 42 Year
  Sex: Female

DRUGS (2)
  1. TOPAMAX [Concomitant]
     Active Substance: TOPIRAMATE
     Indication: MIGRAINE
     Dosage: UNK, DOSE REDUCED
     Route: 065
  2. AIMOVIG [Suspect]
     Active Substance: ERENUMAB-AOOE
     Indication: MIGRAINE
     Dosage: 140 MG, QMO
     Route: 058
     Dates: start: 20180615

REACTIONS (13)
  - Muscle spasms [Unknown]
  - Myalgia [Recovered/Resolved]
  - Injection site pain [Recovered/Resolved]
  - Dysarthria [Unknown]
  - Mobility decreased [Not Recovered/Not Resolved]
  - Drug effect incomplete [Recovered/Resolved]
  - Musculoskeletal discomfort [Unknown]
  - Migraine [Unknown]
  - Constipation [Recovering/Resolving]
  - Weight increased [Unknown]
  - Adverse event [Unknown]
  - Hypersensitivity [Unknown]
  - Nausea [Unknown]

NARRATIVE: CASE EVENT DATE: 2018
